FAERS Safety Report 15152229 (Version 1)
Quarter: 2018Q3

REPORT INFORMATION
  Report Type: Spontaneous
  Country: JP (occurrence: JP)
  Receive Date: 20180717
  Receipt Date: 20180717
  Transmission Date: 20181010
  Serious: Yes (Other)
  Sender: FDA-Public Use
  Company Number: JP-INCYTE CORPORATION-2018IN007074

PATIENT

DRUGS (3)
  1. FLUCONAZOLE CAPSULES [Interacting]
     Active Substance: FLUCONAZOLE
     Indication: PNEUMONIA
  2. FLUCONAZOLE CAPSULES [Interacting]
     Active Substance: FLUCONAZOLE
     Indication: OPPORTUNISTIC INFECTION
     Dosage: UNK
     Route: 065
  3. JAKAVI [Suspect]
     Active Substance: RUXOLITINIB
     Indication: PRODUCT USED FOR UNKNOWN INDICATION
     Dosage: UNK
     Route: 065

REACTIONS (7)
  - Pneumonia [Recovering/Resolving]
  - Cryptococcus test positive [Recovering/Resolving]
  - Drug interaction [Unknown]
  - Pneumonia fungal [None]
  - Fungal infection [Recovering/Resolving]
  - Platelet count decreased [Unknown]
  - Opportunistic infection [None]
